FAERS Safety Report 7271231-0 (Version None)
Quarter: 2011Q1

REPORT INFORMATION
  Report Type: 
  Country: None (occurrence: None)
  Receive Date: 20110202
  Receipt Date: 20110126
  Transmission Date: 20110831
  Serious: Yes (Other)
  Sender: FDA-Public Use
  Company Number: FR-BRISTOL-MYERS SQUIBB COMPANY-15469133

PATIENT
  Age: 39 Year
  Sex: Female
  Weight: 58 kg

DRUGS (2)
  1. HYDREA [Suspect]
     Indication: POLYCYTHAEMIA VERA
     Dosage: RESCEIVED :3 OR 4 YRS,TABS ALSO TAKEN SINCE APR06,3 TABS/DAY SINCE LAST 3 YRS
     Route: 048
     Dates: start: 20060401
  2. KARDEGIC [Concomitant]
     Indication: ANTICOAGULANT THERAPY
     Route: 048
     Dates: start: 20060401

REACTIONS (1)
  - PREMATURE MENOPAUSE [None]
